FAERS Safety Report 7152010-1 (Version None)
Quarter: 2010Q4

REPORT INFORMATION
  Report Type: 
  Country: None (occurrence: None)
  Receive Date: 20101123
  Receipt Date: 20101111
  Transmission Date: 20110411
  Serious: Yes (Other)
  Sender: FDA-Public Use
  Company Number: 2010SP059476

PATIENT
  Age: 59 Year
  Sex: Male

DRUGS (2)
  1. NOXAFIL [Suspect]
     Indication: RESPIRATORY FAILURE
  2. VINCRISTINE [Concomitant]

REACTIONS (2)
  - MEGACOLON [None]
  - POLYNEUROPATHY [None]
